FAERS Safety Report 13176893 (Version 2)
Quarter: 2017Q3

REPORT INFORMATION
  Report Type: Spontaneous
  Country: US (occurrence: US)
  Receive Date: 20170201
  Receipt Date: 20170728
  Transmission Date: 20171127
  Serious: No
  Sender: FDA-Public Use
  Company Number: US-PFIZER INC-2017039165

PATIENT
  Age: 70 Year
  Sex: Male

DRUGS (1)
  1. DEPO-TESTOSTERONE [Suspect]
     Active Substance: TESTOSTERONE CYPIONATE
     Indication: TESTICULAR FAILURE
     Dosage: 2 ML, UNK; (EVERY 2 WEEKS)
     Dates: start: 1960

REACTIONS (1)
  - Prostatic specific antigen increased [Recovering/Resolving]
